FAERS Safety Report 9832037 (Version 3)
Quarter: 2014Q1

REPORT INFORMATION
  Report Type: Report from Study
  Country: FR (occurrence: FR)
  Receive Date: 20140121
  Receipt Date: 20140208
  Transmission Date: 20141002
  Serious: Yes (Hospitalization)
  Sender: FDA-Public Use
  Company Number: FR-009507513-1312FRA000440

PATIENT
  Age: 60 Year
  Sex: Male
  Weight: 79 kg

DRUGS (1)
  1. TEMOZOLOMIDE [Suspect]
     Indication: MALIGNANT MELANOMA
     Dosage: 200 MG/M2, UNK
     Route: 048
     Dates: start: 20131029

REACTIONS (2)
  - Thrombocytopenia [Not Recovered/Not Resolved]
  - Pneumonia [Not Recovered/Not Resolved]
